FAERS Safety Report 11048711 (Version 2)
Quarter: 2015Q3

REPORT INFORMATION
  Report Type: Report from Study
  Country: US (occurrence: US)
  Receive Date: 20150420
  Receipt Date: 20150827
  Transmission Date: 20151125
  Serious: Yes (Hospitalization, Other)
  Sender: FDA-Public Use
  Company Number: US-PURDUE-USA-2015-0122698

PATIENT
  Sex: Female

DRUGS (5)
  1. OXYCONTIN [Suspect]
     Active Substance: OXYCODONE HYDROCHLORIDE
     Dosage: UNK
     Route: 048
     Dates: start: 200703
  2. OXYCONTIN [Suspect]
     Active Substance: OXYCODONE HYDROCHLORIDE
     Dosage: 40 MG, Q12H
     Route: 048
  3. OXYCONTIN [Suspect]
     Active Substance: OXYCODONE HYDROCHLORIDE
     Dosage: 80 MG, Q12H
     Route: 048
  4. OXYCONTIN [Suspect]
     Active Substance: OXYCODONE HYDROCHLORIDE
     Indication: CERVICAL VERTEBRAL FRACTURE
     Dosage: 80 MG, Q12H
     Route: 048
     Dates: start: 20150715
  5. OXYCONTIN [Suspect]
     Active Substance: OXYCODONE HYDROCHLORIDE
     Dosage: 40 MG, Q12H
     Route: 048
     Dates: start: 20150715

REACTIONS (7)
  - Hypoxia [Unknown]
  - Intentional product use issue [Recovered/Resolved]
  - Hospitalisation [Unknown]
  - Heart rate increased [Unknown]
  - Unevaluable event [Unknown]
  - Malaise [Unknown]
  - Respiratory failure [Unknown]

NARRATIVE: CASE EVENT DATE: 2013
